FAERS Safety Report 21528788 (Version 1)
Quarter: 2022Q4

REPORT INFORMATION
  Report Type: Spontaneous
  Country: DE (occurrence: DE)
  Receive Date: 20221031
  Receipt Date: 20221031
  Transmission Date: 20230113
  Serious: Yes (Other)
  Sender: FDA-Public Use
  Company Number: DE-NOVARTISPH-NVSC2022DE239785

PATIENT
  Sex: Female
  Weight: 55 kg

DRUGS (6)
  1. PREDNISOLONE [Suspect]
     Active Substance: PREDNISOLONE
     Indication: Natural killer cell count increased
     Dosage: 5 MG, QD, (3.6 TO 12 GESTATIONAL WEEK)
     Route: 048
  2. PROGESTERONE [Concomitant]
     Active Substance: PROGESTERONE
     Indication: Prophylaxis of abortion
     Dosage: 200 MG, QD, (3.6 TO 10 GESTATIONAL WEEK)
     Route: 067
  3. LEVOTHYROXINE SODIUM [Concomitant]
     Active Substance: LEVOTHYROXINE SODIUM
     Indication: Autoimmune thyroiditis
     Dosage: 125 UG, QD, (BIS 88), (0 TO 39 GESTATIONAL WEEK)
     Route: 048
     Dates: start: 20201014, end: 20210714
  4. MIRTAZAPINE [Concomitant]
     Active Substance: MIRTAZAPINE
     Indication: Depression
     Dosage: 75 MG, QD, (BIS 1), (0 TO 33.2 GESTATIONAL WEEK)
     Route: 048
     Dates: start: 20201014, end: 20210604
  5. ASPIRIN [Concomitant]
     Active Substance: ASPIRIN
     Indication: Prophylaxis
     Dosage: 150 MG, QD, (3.6 TO 35 GESTATIONAL WEEK)
     Route: 048
  6. INTRALIPID [Concomitant]
     Active Substance: EGG PHOSPHOLIPIDS\GLYCERIN\SOYBEAN OIL
     Indication: Natural killer cell count increased
     Dosage: 100 ML, BIW, (3.6 TO 10 GESTATIONAL WEEK)
     Route: 042

REACTIONS (2)
  - Gestational diabetes [Unknown]
  - Exposure during pregnancy [Unknown]
